FAERS Safety Report 5399863-5 (Version None)
Quarter: 2007Q3

REPORT INFORMATION
  Report Type: 
  Country: None (occurrence: None)
  Receive Date: 20070730
  Receipt Date: 20070726
  Transmission Date: 20080115
  Serious: Yes (Death, Hospitalization, Other)
  Sender: FDA-Public Use
  Company Number: PHBS2007JP12123

PATIENT
  Age: 67 Year
  Sex: Female

DRUGS (1)
  1. GLEEVEC [Suspect]
     Indication: CHRONIC MYELOID LEUKAEMIA
     Dosage: 400MG DAILY
     Route: 048
     Dates: start: 20011101

REACTIONS (11)
  - ANAEMIA [None]
  - BLAST CELL CRISIS [None]
  - BONE MARROW FAILURE [None]
  - CHROMOSOME ANALYSIS ABNORMAL [None]
  - MALIGNANT NEOPLASM PROGRESSION [None]
  - MEGAKARYOCYTES [None]
  - MYELOID METAPLASIA [None]
  - PLATELET COUNT DECREASED [None]
  - PNEUMONIA [None]
  - SPLENOMEGALY [None]
  - WHITE BLOOD CELL COUNT INCREASED [None]
